FAERS Safety Report 9679956 (Version 2)
Quarter: 2013Q4

REPORT INFORMATION
  Report Type: Report from Study
  Country: BR (occurrence: BR)
  Receive Date: 20131110
  Receipt Date: 20131205
  Transmission Date: 20140711
  Serious: Yes (Other)
  Sender: FDA-Public Use
  Company Number: PHHY2013BR127163

PATIENT
  Age: 68 Year
  Sex: Female
  Weight: 71.5 kg

DRUGS (7)
  1. RASILEZ HCT [Suspect]
     Indication: HYPERTENSION
     Dosage: 1 DF, (300/ 12,5 MG) DAILY
     Route: 048
     Dates: start: 201310, end: 20131105
  2. DIOVAN HCT [Suspect]
     Indication: HYPERTENSION
     Dosage: 1 DF (160/ 12.5 MG) DAILY
     Route: 048
  3. DIOVAN HCT [Suspect]
     Dosage: 1 DF (160/ 12.5 MG) DAILY
     Route: 048
     Dates: start: 20131106
  4. ALENIA                             /01538101/ [Concomitant]
     Indication: BRONCHOPULMONARY DISEASE
     Dosage: 1 DF, (6/200 UG) Q12H
  5. ALENIA                             /01538101/ [Concomitant]
     Indication: DYSPNOEA
  6. BUSONID [Concomitant]
     Indication: NASAL CONGESTION
     Dosage: 1 DF, EVERY 12 HOURS, USED ONLY WHEN NECESSARY
  7. BIOFENAC//DICLOFENAC SODIUM [Concomitant]
     Indication: SPINAL DISORDER
     Dosage: 1 DF, (50 MG) Q12H
     Route: 048

REACTIONS (8)
  - Asthma [Not Recovered/Not Resolved]
  - Dyspnoea [Unknown]
  - Fatigue [Unknown]
  - Palpitations [Unknown]
  - Nervousness [Unknown]
  - Anxiety [Unknown]
  - Tachycardia [Unknown]
  - Hypertension [Unknown]
